FAERS Safety Report 5766476-2 (Version None)
Quarter: 2008Q2

REPORT INFORMATION
  Report Type: 
  Country: None (occurrence: None)
  Receive Date: 20080606
  Receipt Date: 20080603
  Transmission Date: 20081010
  Serious: Yes (Other)
  Sender: FDA-Public Use
  Company Number: WAES0806FRA00006

PATIENT
  Age: 43 Year
  Sex: Female

DRUGS (1)
  1. ISENTRESS [Suspect]
     Indication: HIV INFECTION
     Dosage: 400 MG/BID, PO
     Route: 048
     Dates: start: 20080123

REACTIONS (2)
  - ASPARTATE AMINOTRANSFERASE INCREASED [None]
  - GAMMA-GLUTAMYLTRANSFERASE INCREASED [None]
